FAERS Safety Report 17625966 (Version 1)
Quarter: 2020Q2

REPORT INFORMATION
  Report Type: Spontaneous
  Country: US (occurrence: US)
  Receive Date: 20200404
  Receipt Date: 20200404
  Transmission Date: 20200713
  Serious: No
  Sender: FDA-Public Use
  Company Number: US-GALDERMA-US19076404

PATIENT
  Sex: Female

DRUGS (1)
  1. DIFFERIN GEL [Suspect]
     Active Substance: ADAPALENE
     Indication: ACNE
     Dosage: 0.1%
     Route: 061

REACTIONS (9)
  - Eye pain [Unknown]
  - Pain of skin [Unknown]
  - Eyelid oedema [Unknown]
  - Skin discomfort [Unknown]
  - Skin exfoliation [Unknown]
  - Skin burning sensation [Unknown]
  - Blepharitis [Unknown]
  - Dry skin [Unknown]
  - Eye swelling [Unknown]
